FAERS Safety Report 9308487 (Version 1)
Quarter: 2013Q2

REPORT INFORMATION
  Report Type: Spontaneous
  Country: US (occurrence: US)
  Receive Date: 20130524
  Receipt Date: 20130524
  Transmission Date: 20140414
  Serious: Yes (Other)
  Sender: FDA-Public Use
  Company Number: US-BAYER-2013-064542

PATIENT
  Age: 66 Year
  Sex: Female
  Weight: 61.22 kg

DRUGS (3)
  1. ALEVE TABLET [Suspect]
     Indication: ARTHRITIS
     Dosage: 2 DF, PRN
     Route: 048
     Dates: start: 2007
  2. IBUPROFEN [Concomitant]
     Dosage: UNK UNK, QD
  3. SINGULAIR [Concomitant]

REACTIONS (1)
  - Gastric ulcer [Recovered/Resolved]
